FAERS Safety Report 5238491-9 (Version None)
Quarter: 2007Q1

REPORT INFORMATION
  Report Type: 
  Country: None (occurrence: None)
  Receive Date: 20070215
  Receipt Date: 20070212
  Transmission Date: 20070707
  Serious: Yes (Hospitalization)
  Sender: FDA-Public Use
  Company Number: US-JNJFOC-20070201899

PATIENT
  Age: 4 Day
  Sex: Male

DRUGS (2)
  1. ACETAMINOPHEN [Suspect]
     Dosage: FOR 2 DAYS (THRID AND FOURTH DAYS OF LIFE)
     Route: 048
  2. ACETAMINOPHEN [Suspect]
     Indication: PAIN MANAGEMENT
     Dosage: TIMES 24 HOURS ON SECOND DAY OF LIFE
     Route: 048

REACTIONS (5)
  - ACCIDENTAL OVERDOSE [None]
  - CONVULSION [None]
  - ENCEPHALOPATHY [None]
  - HEPATIC FAILURE [None]
  - RENAL FAILURE [None]
